FAERS Safety Report 8556137 (Version 2)
Quarter: 2012Q4

REPORT INFORMATION
  Report Type: 
  Country: GB (occurrence: GB)
  Receive Date: 20120510
  Receipt Date: 20121219
  Transmission Date: 20130627
  Serious: Yes (Disabling)
  Sender: FDA-Public Use
  Company Number: GB-WATSON-2012-07881

PATIENT
  Age: 75 Year
  Sex: Male

DRUGS (2)
  1. SIMVASTATIN (UNKNOWN) [Suspect]
     Indication: HYPERLIPIDAEMIA
     Dosage: 40 mg, daily
     Route: 048
     Dates: start: 2010, end: 20111019
  2. METFORMIN [Concomitant]
     Indication: DIABETES MELLITUS
     Dosage: unknown
     Route: 048
     Dates: start: 2010, end: 20111021

REACTIONS (2)
  - Lichenoid keratosis [Recovered/Resolved]
  - Drug eruption [Recovered/Resolved]
